FAERS Safety Report 25079078 (Version 1)
Quarter: 2025Q1

REPORT INFORMATION
  Report Type: Spontaneous
  Country: US (occurrence: US)
  Receive Date: 20250314
  Receipt Date: 20250314
  Transmission Date: 20250408
  Serious: No
  Sender: DIFGEN PHARMACEUTICALS LLC
  Company Number: US-Difgen-011955

PATIENT

DRUGS (1)
  1. BUPRENORPHINE [Suspect]
     Active Substance: BUPRENORPHINE
     Indication: Product used for unknown indication
     Route: 062

REACTIONS (6)
  - Limb discomfort [Unknown]
  - Dermal absorption impaired [Unknown]
  - Product adhesion issue [Unknown]
  - Rash [Unknown]
  - Malaise [Unknown]
  - Pain [Unknown]
